FAERS Safety Report 17798819 (Version 1)
Quarter: 2020Q2

REPORT INFORMATION
  Report Type: Report from Study
  Country: ES (occurrence: ES)
  Receive Date: 20200518
  Receipt Date: 20200518
  Transmission Date: 20200714
  Serious: Yes (Life-Threatening, Hospitalization)
  Sender: FDA-Public Use
  Company Number: ES-TEVA-2020-ES-1235542

PATIENT
  Age: 45 Year
  Sex: Male

DRUGS (6)
  1. OLMESARTAN MEDOXOMILO (9696NQ) [Concomitant]
     Indication: HYPERTENSION
     Dosage: 40MG
     Route: 048
     Dates: start: 20170727, end: 20191022
  2. QUETIAPINA (1136A) [Interacting]
     Active Substance: QUETIAPINE
     Indication: SUICIDE ATTEMPT
     Dosage: 150MG
     Route: 048
     Dates: start: 20191023, end: 20191023
  3. PROPRANOLOL (2218A) [Concomitant]
     Active Substance: PROPRANOLOL HYDROCHLORIDE
     Indication: SUICIDE ATTEMPT
     Dosage: 1G
     Route: 048
     Dates: start: 20191023, end: 20191023
  4. OLMESARTAN MEDOXOMILO (9696NQ) [Concomitant]
     Route: 048
     Dates: start: 20191023, end: 20191023
  5. PREGABALINA (3897A) [Suspect]
     Active Substance: PREGABALIN
     Indication: SUICIDE ATTEMPT
     Route: 048
     Dates: start: 20191023, end: 20191023
  6. PROPRANOLOL (2218A) [Concomitant]
     Active Substance: PROPRANOLOL HYDROCHLORIDE
     Dosage: 40MG
     Route: 048
     Dates: end: 20191022

REACTIONS (3)
  - Intentional overdose [Recovered/Resolved]
  - Coma [Recovered/Resolved]
  - Drug interaction [Unknown]

NARRATIVE: CASE EVENT DATE: 20191023
